FAERS Safety Report 12494709 (Version 2)
Quarter: 2016Q4

REPORT INFORMATION
  Report Type: Spontaneous
  Country: DE (occurrence: DE)
  Receive Date: 20160624
  Receipt Date: 20161014
  Transmission Date: 20170207
  Serious: Yes (Death, Life-Threatening, Hospitalization, Other)
  Sender: FDA-Public Use
  Company Number: DE-ROCHE-1779876

PATIENT
  Age: 37 Year
  Sex: Female
  Weight: 55 kg

DRUGS (8)
  1. CHLOROQUINE. [Concomitant]
     Active Substance: CHLOROQUINE
     Indication: RHEUMATOID ARTHRITIS
     Route: 048
     Dates: start: 201508, end: 201511
  2. METHOTREXATE. [Suspect]
     Active Substance: METHOTREXATE
     Route: 065
     Dates: start: 201208, end: 20150424
  3. SULFASALAZINE. [Concomitant]
     Active Substance: SULFASALAZINE
     Indication: RHEUMATOID ARTHRITIS
     Route: 048
     Dates: start: 201510, end: 201511
  4. MABTHERA [Suspect]
     Active Substance: RITUXIMAB
     Indication: RHEUMATOID ARTHRITIS
     Route: 042
     Dates: start: 200909, end: 201009
  5. METHOTREXATE. [Suspect]
     Active Substance: METHOTREXATE
     Indication: RHEUMATOID ARTHRITIS
     Route: 058
     Dates: start: 200909, end: 201009
  6. METHOTREXATE. [Suspect]
     Active Substance: METHOTREXATE
     Route: 065
     Dates: start: 2002, end: 2008
  7. MABTHERA [Suspect]
     Active Substance: RITUXIMAB
     Route: 042
     Dates: start: 201208, end: 20150424
  8. ANAKINRA [Concomitant]
     Active Substance: ANAKINRA
     Indication: RHEUMATOID ARTHRITIS
     Dosage: AS REQUIRED
     Route: 058
     Dates: start: 201511, end: 201602

REACTIONS (32)
  - Ascites [Fatal]
  - Blood lactate dehydrogenase increased [Fatal]
  - Encephalitis [Fatal]
  - C-reactive protein increased [Unknown]
  - Pyelonephritis [Fatal]
  - Vitamin B12 deficiency [Fatal]
  - Complement factor C3 decreased [Fatal]
  - Carditis [Fatal]
  - General physical health deterioration [Fatal]
  - Decreased appetite [Fatal]
  - Glomerulonephritis chronic [Fatal]
  - Hypercoagulation [Fatal]
  - Vasculitis [Fatal]
  - Emphysema [Unknown]
  - Anaemia [Fatal]
  - Gastritis [Fatal]
  - Meningitis aseptic [Fatal]
  - Nephrotic syndrome [Fatal]
  - Pharyngitis [Recovered/Resolved]
  - Lactose intolerance [Unknown]
  - Colitis [Fatal]
  - Pleural effusion [Fatal]
  - Pneumonia [Fatal]
  - Acute kidney injury [Fatal]
  - Depression [Unknown]
  - Pericardial effusion [Fatal]
  - Protein deficiency [Fatal]
  - Myelitis [Unknown]
  - Atrial fibrillation [Unknown]
  - Blood immunoglobulin M decreased [Fatal]
  - Myelitis [Fatal]
  - Lung infiltration [Fatal]

NARRATIVE: CASE EVENT DATE: 2014
